FAERS Safety Report 18015958 (Version 2)
Quarter: 2023Q1

REPORT INFORMATION
  Report Type: Spontaneous
  Country: CN (occurrence: CN)
  Receive Date: 20200713
  Receipt Date: 20230123
  Transmission Date: 20230418
  Serious: Yes (Other)
  Sender: FDA-Public Use
  Company Number: CN-NOVARTISPH-NVSC2020CN195259

PATIENT
  Age: 28 Year
  Sex: Female

DRUGS (3)
  1. LAPATINIB [Suspect]
     Active Substance: LAPATINIB
     Indication: HER2 positive breast cancer
     Dosage: UNK (FOURTH-LINE THERAPY)
     Route: 065
     Dates: start: 201604, end: 201607
  2. RALTITREXED [Suspect]
     Active Substance: RALTITREXED
     Indication: HER2 positive breast cancer
     Dosage: UNK (FOURTH-LINE THERAPY)
     Route: 065
     Dates: start: 201604, end: 201607
  3. TRASTUZUMAB [Suspect]
     Active Substance: TRASTUZUMAB
     Indication: HER2 positive breast cancer
     Dosage: UNK (FOURTH-LINE THERAPY)
     Route: 065
     Dates: start: 201604, end: 201607

REACTIONS (4)
  - HER2 positive breast cancer [Unknown]
  - Malignant neoplasm progression [Unknown]
  - Metastases to lung [Unknown]
  - Chest wall mass [Unknown]
